FAERS Safety Report 8895941 (Version 1)
Quarter: 2012Q4

REPORT INFORMATION
  Report Type: 
  Country: US (occurrence: US)
  Receive Date: 20121108
  Receipt Date: 20121108
  Transmission Date: 20130627
  Serious: No
  Sender: FDA-Public Use
  Company Number: US-ASTRAZENECA-2012SE80729

PATIENT
  Age: 78 Year
  Sex: Male

DRUGS (5)
  1. SYMBICORT [Suspect]
     Indication: ASTHMA
     Dosage: UNKNOWN
     Route: 055
  2. SYMBICORT [Suspect]
     Indication: EMPHYSEMA
     Dosage: UNKNOWN
     Route: 055
  3. ADVAIR [Concomitant]
     Indication: ASTHMA
  4. ADVAIR [Concomitant]
     Indication: EMPHYSEMA
  5. OTHER MEDICATIONS [Concomitant]

REACTIONS (4)
  - Lung disorder [Unknown]
  - Cardiac disorder [Unknown]
  - Colour blindness [Unknown]
  - Arterial occlusive disease [Unknown]
